FAERS Safety Report 5262831-8 (Version None)
Quarter: 2007Q1

REPORT INFORMATION
  Report Type: 
  Country: None (occurrence: None)
  Receive Date: 20070312
  Receipt Date: 20070225
  Transmission Date: 20070707
  Serious: Yes (Hospitalization, Other)
  Sender: FDA-Public Use
  Company Number: HQWYE871226FEB07

PATIENT
  Age: 39 Year
  Sex: Male

DRUGS (1)
  1. ENBREL [Suspect]
     Indication: ANKYLOSING SPONDYLITIS
     Route: 058
     Dates: start: 20060801, end: 20070101

REACTIONS (3)
  - ABORTION SPONTANEOUS [None]
  - PNEUMONIA [None]
  - TRANSMISSION OF DRUG VIA SEMEN [None]
